FAERS Safety Report 22332473 (Version 1)
Quarter: 2023Q2

REPORT INFORMATION
  Report Type: Spontaneous
  Country: US (occurrence: US)
  Receive Date: 20230517
  Receipt Date: 20230517
  Transmission Date: 20230721
  Serious: Yes (Other)
  Sender: FDA-Public Use
  Company Number: US-ASTELLAS-2023EU001263

PATIENT
  Sex: Male

DRUGS (1)
  1. TARCEVA [Suspect]
     Active Substance: ERLOTINIB HYDROCHLORIDE
     Indication: Product used for unknown indication
     Dosage: UNK, UNK, UNKNOWN FREQ.
     Route: 065

REACTIONS (2)
  - Ductal adenocarcinoma of pancreas [Unknown]
  - Malignant neoplasm progression [Unknown]
